FAERS Safety Report 6811802-6 (Version None)
Quarter: 2010Q3

REPORT INFORMATION
  Report Type: 
  Country: None (occurrence: None)
  Receive Date: 20100701
  Receipt Date: 20100621
  Transmission Date: 20110219
  Serious: Yes (Hospitalization)
  Sender: FDA-Public Use
  Company Number: US-JNJFOC-20100606422

PATIENT
  Age: 66 Year
  Sex: Female
  Weight: 66.68 kg

DRUGS (7)
  1. EXTRA STRENGTH TYLENOL [Suspect]
     Route: 048
  2. EXTRA STRENGTH TYLENOL [Suspect]
     Indication: HEADACHE
     Route: 048
  3. KEPPRA [Concomitant]
     Indication: CONVULSION
  4. SYNTHROID [Concomitant]
     Indication: THYROIDECTOMY
  5. DIGOXIN [Concomitant]
     Indication: HEART RATE IRREGULAR
  6. ATENOLOL [Concomitant]
     Indication: HEART RATE IRREGULAR
  7. COUMADIN [Concomitant]
     Indication: ANTICOAGULANT THERAPY

REACTIONS (3)
  - HYPERSENSITIVITY [None]
  - MUSCLE SPASMS [None]
  - VAGINAL INFLAMMATION [None]
